FAERS Safety Report 5669842-9 (Version None)
Quarter: 2008Q1

REPORT INFORMATION
  Report Type: 
  Country: None (occurrence: None)
  Receive Date: 20080317
  Receipt Date: 20080311
  Transmission Date: 20080703
  Serious: Yes (Death)
  Sender: FDA-Public Use
  Company Number: GB-PFIZER INC-2008006585

PATIENT

DRUGS (1)
  1. GENOTROPIN [Suspect]
     Route: 058

REACTIONS (2)
  - PNEUMONIA [None]
  - RENAL TRANSPLANT [None]
